FAERS Safety Report 7953891-1 (Version None)
Quarter: 2011Q4

REPORT INFORMATION
  Report Type: 
  Country: None (occurrence: None)
  Receive Date: 20111129
  Receipt Date: 20111117
  Transmission Date: 20120403
  Serious: Yes (Hospitalization)
  Sender: FDA-Public Use
  Company Number: UTC-012559

PATIENT
  Age: 53 Year
  Sex: Female
  Weight: 73.6 kg

DRUGS (4)
  1. ADCIRCA [Concomitant]
  2. REMODULIN [Suspect]
     Indication: PULMONARY ARTERIAL HYPERTENSION
     Dosage: 169.92 UG/KG(0.118 UG/KG, 1 IN 1 MIN), INTRAVENOUS; 77.76 UG/KG(0.045 UG/KG,1 IN 1 MIN), INTRAVENOUS
     Route: 042
     Dates: start: 20091230
  3. REVATIO [Suspect]
  4. TYVASO [Suspect]
     Indication: PULMONARY ARTERIAL HYPERTENSION
     Dosage: 72 MCG (18 MCG, 4 IN 1 D), INHALATION
     Route: 055
     Dates: start: 20111116

REACTIONS (5)
  - HYPOTENSION [None]
  - NAUSEA [None]
  - DIZZINESS [None]
  - VOMITING [None]
  - PAIN IN EXTREMITY [None]
